FAERS Safety Report 8169685-0 (Version None)
Quarter: 2012Q1

REPORT INFORMATION
  Report Type: 
  Country: None (occurrence: None)
  Receive Date: 20120228
  Receipt Date: 20120221
  Transmission Date: 20120608
  Serious: No
  Sender: FDA-Public Use
  Company Number: US-PFIZER INC-2012048500

PATIENT
  Sex: Female

DRUGS (1)
  1. XALKORI [Suspect]
     Indication: TRACHEAL NEOPLASM
     Dosage: 250 MG, 2X/DAY
     Route: 048
     Dates: start: 20120202, end: 20120221

REACTIONS (4)
  - DYSPNOEA [None]
  - OROPHARYNGEAL PAIN [None]
  - RESPIRATORY DISORDER [None]
  - CONSTIPATION [None]
